FAERS Safety Report 9225252 (Version 1)
Quarter: 2013Q2

REPORT INFORMATION
  Report Type: Spontaneous
  Country: US (occurrence: None)
  Receive Date: 20130410
  Receipt Date: 20130410
  Transmission Date: 20140414
  Serious: Yes (Hospitalization)
  Sender: FDA-Public Use
  Company Number: None

PATIENT
  Age: 57 Year
  Sex: Male
  Weight: 87.09 kg

DRUGS (2)
  1. ZOFRAN [Suspect]
     Indication: PROPHYLAXIS OF NAUSEA AND VOMITING
     Dosage: 4MG   1.5 HRS APART  IV
     Route: 042
     Dates: start: 20121214, end: 20121215
  2. ZOFRAN [Suspect]
     Indication: PROPHYLAXIS OF NAUSEA AND VOMITING
     Dosage: 4MG   1.5 HRS APART  IV
     Route: 042
     Dates: start: 20121214, end: 20121215

REACTIONS (4)
  - Vomiting [None]
  - Chest discomfort [None]
  - Unevaluable event [None]
  - Nausea [None]
